FAERS Safety Report 8886670 (Version 2)
Quarter: 2012Q4

REPORT INFORMATION
  Report Type: 
  Country: US (occurrence: US)
  Receive Date: 20121105
  Receipt Date: 20121108
  Transmission Date: 20130627
  Serious: Yes (Hospitalization, Other)
  Sender: FDA-Public Use
  Company Number: PHHY2012US098955

PATIENT
  Age: 43 Year
  Sex: Female
  Weight: 64 kg

DRUGS (3)
  1. LISINOPRIL [Suspect]
     Dosage: 2.5 mg, QD for 1 week
  2. NEOSYNEPHRINE [Interacting]
     Indication: VASOCONSTRICTION
     Dosage: 80 ug/ml
  3. NEOSYNEPHRINE [Interacting]
     Dosage: 320 ug/ml, UNK

REACTIONS (9)
  - Cardiomegaly [Recovered/Resolved]
  - Mitral valve incompetence [Recovered/Resolved]
  - Tricuspid valve incompetence [Recovered/Resolved]
  - Chest pain [Recovered/Resolved]
  - Sinus tachycardia [Recovered/Resolved]
  - Hypotension [Recovered/Resolved]
  - Dyspnoea [Recovered/Resolved]
  - Drug interaction [Unknown]
  - Therapeutic response decreased [Recovering/Resolving]
